FAERS Safety Report 9308500 (Version 5)
Quarter: 2013Q4

REPORT INFORMATION
  Report Type: Report from Study
  Country: DE (occurrence: DE)
  Receive Date: 20130524
  Receipt Date: 20131001
  Transmission Date: 20140711
  Serious: Yes (Hospitalization, Other)
  Sender: FDA-Public Use
  Company Number: DE-CELGENEUS-062-C4047-13043275

PATIENT
  Age: 75 Year
  Sex: Male
  Weight: 97 kg

DRUGS (21)
  1. CC-4047 [Suspect]
     Indication: PLASMA CELL MYELOMA
     Dosage: 4 MILLIGRAM
     Route: 048
     Dates: start: 20120220
  2. CC-4047 [Suspect]
     Dosage: 2 MILLIGRAM
     Route: 048
     Dates: start: 20130411, end: 20130417
  3. CC-4047 [Suspect]
     Dosage: 2 MILLIGRAM
     Route: 048
     Dates: start: 20130508
  4. DEXAMETHASONE [Suspect]
     Indication: PLASMA CELL MYELOMA
     Dosage: 10 MILLIGRAM
     Route: 065
     Dates: start: 20130508
  5. DEXAMETHASONE [Suspect]
     Dosage: 40 MILLIGRAM
     Route: 065
     Dates: start: 20120220
  6. DEXAMETHASONE [Suspect]
     Dosage: 2 MILLIGRAM
     Route: 065
     Dates: start: 20130411, end: 20130411
  7. NEUPOGEN [Concomitant]
     Indication: NEUTROPENIA
     Route: 058
     Dates: start: 20130128
  8. NEUPOGEN [Concomitant]
     Indication: PROPHYLAXIS
     Route: 065
  9. COMBACTAM [Concomitant]
     Indication: PNEUMONIA
     Route: 065
     Dates: start: 20130126
  10. PIPERACILLIN [Concomitant]
     Indication: PNEUMONIA
     Route: 065
     Dates: start: 20130126
  11. CLEXANE [Concomitant]
     Indication: THROMBOSIS PROPHYLAXIS
     Dosage: 80 MILLIGRAM
     Route: 058
     Dates: start: 20130103
  12. VALACICLOVIR [Concomitant]
     Indication: HERPES ZOSTER
     Dosage: 1000 MILLIGRAM
     Route: 048
     Dates: start: 20121009
  13. TRIMETHOPRIM [Concomitant]
     Indication: INFECTION PROPHYLAXIS
     Dosage: 320 MILLIGRAM
     Route: 048
     Dates: start: 20120223
  14. SULFAMETHOXAZOL [Concomitant]
     Indication: INFECTION PROPHYLAXIS
     Dosage: 1600 MILLIGRAM
     Route: 048
     Dates: start: 20120223
  15. TAMSULOSIN [Concomitant]
     Indication: BENIGN PROSTATIC HYPERPLASIA
     Dosage: .4 MILLIGRAM
     Route: 048
     Dates: start: 2000
  16. LYRICA [Concomitant]
     Indication: POLYNEUROPATHY
     Dosage: 300 MILLIGRAM
     Route: 048
     Dates: start: 2008
  17. ARTELAC [Concomitant]
     Indication: SJOGREN^S SYNDROME
     Route: 047
     Dates: start: 2011
  18. IMODIUM [Concomitant]
     Indication: DIARRHOEA
     Route: 065
     Dates: start: 2009
  19. LIMPTAR [Concomitant]
     Indication: MUSCLE SPASMS
     Route: 048
     Dates: start: 20120220
  20. METAMIZOLE [Concomitant]
     Indication: OSTEOARTHRITIS
     Dosage: 80 DOSAGE FORMS
     Route: 048
     Dates: start: 20121107
  21. METAMIZOLE [Concomitant]
     Route: 048
     Dates: start: 20121107

REACTIONS (2)
  - Prostate cancer stage IV [Not Recovered/Not Resolved]
  - Osteoarthritis [Recovered/Resolved with Sequelae]
